FAERS Safety Report 5928673-2 (Version None)
Quarter: 2008Q3

REPORT INFORMATION
  Report Type: 
  Country: None (occurrence: None)
  Receive Date: 20080923
  Receipt Date: 20080115
  Transmission Date: 20090109
  Serious: Yes (Hospitalization)
  Sender: FDA-Public Use
  Company Number: WAES 0801USA03224

PATIENT
  Age: 56 Year
  Sex: Male

DRUGS (5)
  1. VYTORIN [Suspect]
     Indication: BLOOD CHOLESTEROL
     Dosage: PO
     Route: 048
     Dates: start: 20060401, end: 20070101
  2. DIAZEPAN [Concomitant]
  3. ATENOLOL [Concomitant]
  4. LEVOTHYROXINE SODIUM [Concomitant]
  5. METHADONE HCL [Concomitant]

REACTIONS (5)
  - ARTHRALGIA [None]
  - CHOLELITHIASIS [None]
  - HYPOTHYROIDISM [None]
  - MYALGIA [None]
  - PANCREATITIS [None]
